FAERS Safety Report 7116854-4 (Version None)
Quarter: 2010Q4

REPORT INFORMATION
  Report Type: 
  Country: None (occurrence: None)
  Receive Date: 20101122
  Receipt Date: 20101110
  Transmission Date: 20110411
  Serious: Yes (Hospitalization, Other)
  Sender: FDA-Public Use
  Company Number: US-CELGENEUS-163-21880-10102254

PATIENT
  Sex: Male

DRUGS (17)
  1. REVLIMID [Suspect]
     Indication: MULTIPLE MYELOMA
     Route: 048
     Dates: start: 20090401
  2. REVLIMID [Suspect]
     Route: 048
     Dates: start: 20090901
  3. REVLIMID [Suspect]
     Route: 048
     Dates: start: 20090401, end: 20101001
  4. OXYCONTIN [Concomitant]
     Indication: PAIN
     Route: 048
     Dates: start: 20100928
  5. VALTREX [Concomitant]
     Route: 048
     Dates: start: 20100614
  6. UROXATRAL [Concomitant]
     Route: 048
     Dates: start: 20100510
  7. STARLIX [Concomitant]
     Route: 048
     Dates: start: 20090227
  8. PROZAC [Concomitant]
     Route: 065
     Dates: start: 20080227
  9. NEXIUM [Concomitant]
     Route: 065
     Dates: start: 20091118
  10. OXYCODONE HCL [Concomitant]
     Route: 048
  11. CALCIUM [Concomitant]
     Route: 065
  12. VITAMIN D [Concomitant]
     Route: 065
  13. COLACE [Concomitant]
     Route: 065
  14. SENNA [Concomitant]
     Route: 048
  15. METAMUCIL-2 [Concomitant]
     Route: 065
  16. ASPIRIN [Concomitant]
     Route: 065
  17. ZOMETA [Concomitant]
     Route: 065

REACTIONS (3)
  - BILE DUCT OBSTRUCTION [None]
  - INCISION SITE INFECTION [None]
  - LIVER FUNCTION TEST ABNORMAL [None]
